FAERS Safety Report 5390034-5 (Version None)
Quarter: 2007Q3

REPORT INFORMATION
  Report Type: 
  Country: None (occurrence: None)
  Receive Date: 20070718
  Receipt Date: 20070713
  Transmission Date: 20080115
  Serious: Yes (Death)
  Sender: FDA-Public Use
  Company Number: FR-AVENTIS-200712276FR

PATIENT
  Age: 94 Year
  Sex: Female

DRUGS (1)
  1. LOVENOX [Suspect]
     Route: 058
     Dates: start: 20070520, end: 20070611

REACTIONS (2)
  - GINGIVAL BLEEDING [None]
  - THROMBOCYTOPENIA [None]
